FAERS Safety Report 9073241 (Version 1)
Quarter: 2013Q1

REPORT INFORMATION
  Report Type: Report from Study
  Country: US (occurrence: US)
  Receive Date: 20130129
  Receipt Date: 20130129
  Transmission Date: 20140127
  Serious: No
  Sender: FDA-Public Use
  Company Number: US-ABBOTT-12P-163-0941293-00

PATIENT
  Age: 71 Year
  Sex: Female

DRUGS (5)
  1. HUMIRA 40 MG/0.8 ML PEN [Suspect]
     Indication: RHEUMATOID ARTHRITIS
     Dates: start: 20120529
  2. FOLBEE [Concomitant]
     Indication: RHEUMATOID ARTHRITIS
     Route: 048
  3. LEFLUNOMIDE [Concomitant]
     Indication: INFLAMMATION
     Dosage: 20MG DAILY
     Route: 048
  4. GLUCOSAMINE [Concomitant]
     Indication: RHEUMATOID ARTHRITIS
     Route: 048
  5. UNKNOWN MEDICATIONS [Concomitant]
     Indication: PRODUCT USED FOR UNKNOWN INDICATION

REACTIONS (3)
  - Feeling hot [Unknown]
  - Blood glucose increased [Not Recovered/Not Resolved]
  - Rash [Unknown]
